FAERS Safety Report 19400196 (Version 2)
Quarter: 2021Q2

REPORT INFORMATION
  Report Type: Spontaneous
  Country: AR (occurrence: AR)
  Receive Date: 20210610
  Receipt Date: 20210629
  Transmission Date: 20210717
  Serious: Yes (Hospitalization)
  Sender: FDA-Public Use
  Company Number: AR-BAYER-2021-152813

PATIENT
  Age: 41 Year
  Sex: Female

DRUGS (1)
  1. YASMIN [Suspect]
     Active Substance: DROSPIRENONE\ETHINYL ESTRADIOL
     Indication: HORMONE REPLACEMENT THERAPY
     Route: 048
     Dates: start: 20180101, end: 20210405

REACTIONS (4)
  - Hospitalisation [Not Recovered/Not Resolved]
  - Product blister packaging issue [None]
  - Off label use [None]
  - Product packaging quantity issue [None]

NARRATIVE: CASE EVENT DATE: 20210405
